FAERS Safety Report 18894934 (Version 2)
Quarter: 2021Q2

REPORT INFORMATION
  Report Type: Spontaneous
  Country: BR (occurrence: BR)
  Receive Date: 20210216
  Receipt Date: 20210615
  Transmission Date: 20210717
  Serious: Yes (Death, Other)
  Sender: FDA-Public Use
  Company Number: BR-BRISTOL-MYERS SQUIBB COMPANY-BMS-2021-014843

PATIENT
  Age: 88 Year
  Sex: Female

DRUGS (2)
  1. HYDREA [Suspect]
     Active Substance: HYDROXYUREA
     Indication: MYELOBLASTOMA
     Dosage: 500MG EVERY OTHER DAY
     Route: 065
     Dates: start: 2009
  2. ASPIRIN [ACETYLSALICYLIC ACID] [Concomitant]
     Active Substance: ASPIRIN
     Indication: PRODUCT USED FOR UNKNOWN INDICATION
     Dosage: CHILDREN^S ASPIRIN
     Route: 065

REACTIONS (3)
  - Death [Fatal]
  - Blood disorder [Unknown]
  - Intentional product use issue [Unknown]
